FAERS Safety Report 8516903-2 (Version None)
Quarter: 2012Q2

REPORT INFORMATION
  Report Type: 
  Country: None (occurrence: None)
  Receive Date: 20120406
  Receipt Date: 20091207
  Transmission Date: 20120825
  Serious: Yes (Hospitalization)
  Sender: FDA-Public Use
  Company Number: PHEH2009US14171

PATIENT
  Age: 61 Year
  Sex: Female

DRUGS (17)
  1. ACIPHEX [Concomitant]
  2. NITROGLYCERIN ^A.L.^ (GLYCERYL TRINITRATE) [Concomitant]
  3. SPIRONOLACTONE [Concomitant]
  4. CIPRO [Concomitant]
  5. LYRICA [Concomitant]
  6. TASIGNA [Suspect]
     Indication: CHRONIC MYELOID LEUKAEMIA
     Dosage: 200 MG, BID, ORAL; 200 MG, BID, ORAL
     Route: 048
     Dates: start: 20091001
  7. BONIVA [Concomitant]
  8. HYDROCODONE W/APAP (HYDROCODONE, PARACETAMOL) [Concomitant]
  9. PROPYL-THIOURACIL [Concomitant]
  10. NEURONTIN [Concomitant]
  11. LOPRESSOR [Concomitant]
  12. OXYBUTYNIN [Concomitant]
  13. LAMISIL [Concomitant]
  14. FUROSEMIDE [Concomitant]
  15. PREDNISONE [Concomitant]
  16. NORFLEX [Concomitant]
  17. CLARINEX [Concomitant]

REACTIONS (9)
  - PAIN [None]
  - BURNING SENSATION [None]
  - EYE SWELLING [None]
  - MEDICATION ERROR [None]
  - CHEST PAIN [None]
  - HAEMOGLOBIN DECREASED [None]
  - ERYTHEMA [None]
  - OEDEMA PERIPHERAL [None]
  - COMPLEX REGIONAL PAIN SYNDROME [None]
